FAERS Safety Report 6941057-3 (Version None)
Quarter: 2010Q3

REPORT INFORMATION
  Report Type: 
  Country: None (occurrence: None)
  Receive Date: 20100825
  Receipt Date: 20100820
  Transmission Date: 20110219
  Serious: Yes (Life-Threatening, Hospitalization, Disabling, Other)
  Sender: FDA-Public Use
  Company Number: FR-BRISTOL-MYERS SQUIBB COMPANY-15211188

PATIENT
  Age: 19 Year
  Sex: Male

DRUGS (2)
  1. HICONCIL [Suspect]
     Route: 048
     Dates: start: 19810301
  2. PAXELADINE [Concomitant]
     Dates: start: 19810301

REACTIONS (7)
  - KERATITIS [None]
  - SEPSIS [None]
  - SICCA SYNDROME [None]
  - SYMBLEPHARON [None]
  - TOXIC EPIDERMAL NECROLYSIS [None]
  - UVEITIS [None]
  - VISUAL ACUITY REDUCED [None]
